FAERS Safety Report 21979706 (Version 3)
Quarter: 2023Q1

REPORT INFORMATION
  Report Type: Report from Study
  Country: FR (occurrence: FR)
  Receive Date: 20230210
  Receipt Date: 20230330
  Transmission Date: 20230417
  Serious: Yes (Hospitalization)
  Sender: FDA-Public Use
  Company Number: FR-BRISTOL-MYERS SQUIBB COMPANY-2023-001442

PATIENT
  Age: 81 Year
  Sex: Male
  Weight: 71 kg

DRUGS (13)
  1. PLACEBO [Suspect]
     Active Substance: UNSPECIFIED INGREDIENT
     Indication: Malignant melanoma
     Dosage: DOSE: 3600 MG/ML?MOST RECENT DOSE WAS ADMINISTERED ON 26-DEC-2022.
     Dates: start: 20221121
  2. NIVOLUMAB [Suspect]
     Active Substance: NIVOLUMAB
     Indication: Malignant melanoma
     Dosage: MOST RECENT DOSE OF 72 MG WAS ADMINISTERED ON 19-DEC-2022.
     Route: 042
     Dates: start: 20221121
  3. IPILIMUMAB [Suspect]
     Active Substance: IPILIMUMAB
     Indication: Malignant melanoma
     Dosage: MOST RECENT DOSE OF 215 MG WAS ADMINISTERED ON 19-DEC-2022.
     Route: 042
     Dates: start: 20221121
  4. FUSIDIC ACID [Concomitant]
     Active Substance: FUSIDIC ACID
     Indication: Rash
     Route: 061
     Dates: start: 20221219, end: 20221225
  5. LEVOTHYROXINE [Concomitant]
     Active Substance: LEVOTHYROXINE
     Indication: Product used for unknown indication
     Route: 048
     Dates: start: 20221027, end: 20230104
  6. KARDEGIC [Concomitant]
     Active Substance: ASPIRIN DL-LYSINE
     Indication: Product used for unknown indication
     Route: 048
     Dates: start: 1999
  7. NITROGLYCERIN [Concomitant]
     Active Substance: NITROGLYCERIN
     Indication: Acute coronary syndrome
     Route: 055
     Dates: start: 20221204
  8. EZETIMIBE [Concomitant]
     Active Substance: EZETIMIBE
     Indication: Acute coronary syndrome
     Route: 048
     Dates: start: 20221204
  9. TICAGRELOR [Concomitant]
     Active Substance: TICAGRELOR
     Indication: Acute coronary syndrome
     Route: 048
     Dates: start: 20221204
  10. PANTOPRAZOLE [Concomitant]
     Active Substance: PANTOPRAZOLE
     Indication: Acute coronary syndrome
     Route: 048
     Dates: start: 20221204
  11. NEBIVOLOL [Concomitant]
     Active Substance: NEBIVOLOL
     Indication: Acute coronary syndrome
     Route: 048
     Dates: start: 20221204
  12. ALPRAZOLAM [Concomitant]
     Active Substance: ALPRAZOLAM
     Indication: Anxiety
     Route: 048
     Dates: start: 20221222
  13. COVID-19 VACCINE [Concomitant]
     Indication: Prophylaxis
     Route: 030
     Dates: start: 20221015

REACTIONS (3)
  - Rash [Recovered/Resolved]
  - Asthenia [Recovered/Resolved]
  - Arthralgia [Recovered/Resolved]

NARRATIVE: CASE EVENT DATE: 20230102
